FAERS Safety Report 19238843 (Version 12)
Quarter: 2022Q1

REPORT INFORMATION
  Report Type: Report from Study
  Country: BR (occurrence: BR)
  Receive Date: 20210510
  Receipt Date: 20220318
  Transmission Date: 20220423
  Serious: Yes (Hospitalization, Other)
  Sender: FDA-Public Use
  Company Number: NVSC2021BR073634

PATIENT
  Age: 65 Year
  Sex: Female

DRUGS (11)
  1. KISQALI [Suspect]
     Active Substance: RIBOCICLIB
     Indication: Neoplasm malignant
     Dosage: 2 DF, QD
     Route: 065
     Dates: start: 20210219
  2. KISQALI [Suspect]
     Active Substance: RIBOCICLIB
     Indication: Lung neoplasm malignant
     Dosage: 2 DF, QD (2 TABLETS DAILY)
     Route: 065
     Dates: start: 20210219
  3. KISQALI [Suspect]
     Active Substance: RIBOCICLIB
     Dosage: 3 DOSAGE FORM, QD
     Route: 065
     Dates: start: 20210219, end: 2021
  4. KISQALI [Suspect]
     Active Substance: RIBOCICLIB
     Dosage: 3 DF, QD (DURING THE DAY FOR 21 DAYS)
     Route: 048
     Dates: start: 20210219, end: 202104
  5. KISQALI [Suspect]
     Active Substance: RIBOCICLIB
     Dosage: 3 DF OF 200 MG (DURING THE DAY FOR 21 DAYS)
     Route: 048
     Dates: start: 20210504
  6. KISQALI [Suspect]
     Active Substance: RIBOCICLIB
     Dosage: 2 DF (START DATE: 2 OR 3 MONTHS AGO)
     Route: 065
  7. KISQALI [Suspect]
     Active Substance: RIBOCICLIB
     Dosage: 2 DOSAGE FORM, QD (STOP DATE: AFTER 2 OR 3 MONTHS)
     Route: 065
     Dates: start: 2021
  8. KISQALI [Suspect]
     Active Substance: RIBOCICLIB
     Dosage: 3 DOSAGE FORM, QD
     Route: 065
     Dates: start: 2021
  9. ZOLPIDEM [Suspect]
     Active Substance: ZOLPIDEM TARTRATE
     Indication: Insomnia
     Dosage: 1 DF (1 TABLET OF 10MG), (DURING THE DAY (AT NIGHT)) (ABOUT 1 MONTH AGO)
     Route: 048
  10. ATORVASTATIN [Concomitant]
     Active Substance: ATORVASTATIN
     Indication: Blood cholesterol increased
     Dosage: 1 DF (1 TABLET OF 20 MG, DURING THE DAY) (ABOUT 06 YEARS AGO)
     Route: 048
  11. ESCITALOPRAM [Concomitant]
     Active Substance: ESCITALOPRAM OXALATE
     Indication: Anxiety
     Dosage: 1 DF (01 TABLET OF 15MG DURING THE DAY (IN THE MORNING)) (ABOUT 03 YEARS)
     Route: 048

REACTIONS (31)
  - Pneumonia [Recovered/Resolved]
  - Dyspnoea [Recovered/Resolved]
  - Cough [Recovered/Resolved]
  - Fatigue [Recovered/Resolved]
  - Asthenia [Recovered/Resolved]
  - Decreased immune responsiveness [Recovered/Resolved]
  - Decreased immune responsiveness [Recovered/Resolved]
  - Decreased immune responsiveness [Not Recovered/Not Resolved]
  - Abdominal distension [Recovered/Resolved]
  - Decreased appetite [Recovering/Resolving]
  - Discouragement [Recovering/Resolving]
  - Nausea [Recovered/Resolved]
  - Asthenia [Recovered/Resolved]
  - Pain in extremity [Recovered/Resolved]
  - Pulmonary oedema [Recovered/Resolved]
  - Insomnia [Recovering/Resolving]
  - Cough [Not Recovered/Not Resolved]
  - Malaise [Recovering/Resolving]
  - Vision blurred [Not Recovered/Not Resolved]
  - General physical health deterioration [Unknown]
  - Fatigue [Not Recovered/Not Resolved]
  - Nausea [Recovering/Resolving]
  - Pulmonary pain [Unknown]
  - Dysphonia [Unknown]
  - Product dose omission issue [Unknown]
  - Gait disturbance [Not Recovered/Not Resolved]
  - Asthenia [Unknown]
  - Illness [Unknown]
  - Feeling abnormal [Recovered/Resolved]
  - Product use in unapproved indication [Unknown]
  - Headache [Recovered/Resolved]

NARRATIVE: CASE EVENT DATE: 20210201
